FAERS Safety Report 6651280-3 (Version None)
Quarter: 2010Q1

REPORT INFORMATION
  Report Type: 
  Country: None (occurrence: None)
  Receive Date: 20100325
  Receipt Date: 20100318
  Transmission Date: 20100710
  Serious: Yes (Other)
  Sender: FDA-Public Use
  Company Number: US-SANOFI-AVENTIS-2010SA016637

PATIENT
  Age: 52 Year
  Sex: Female

DRUGS (5)
  1. LANTUS [Suspect]
     Dosage: DOSE:100 UNIT(S)
     Route: 058
  2. LANTUS [Suspect]
     Dosage: DOSE:80 UNIT(S)
     Route: 058
     Dates: start: 20070101
  3. SOLOSTAR [Suspect]
     Dates: start: 20070101
  4. CORTICOSTEROID NOS [Concomitant]
     Indication: SARCOIDOSIS
  5. OXYGEN [Concomitant]
     Dates: start: 20080101

REACTIONS (2)
  - BLOOD GLUCOSE INCREASED [None]
  - EYE OPERATION [None]
